FAERS Safety Report 25275544 (Version 1)
Quarter: 2025Q2

REPORT INFORMATION
  Report Type: Spontaneous
  Country: RO (occurrence: RO)
  Receive Date: 20250506
  Receipt Date: 20250506
  Transmission Date: 20250716
  Serious: Yes (Other)
  Sender: ALEXION PHARMACEUTICALS
  Company Number: RO-AstraZeneca-CH-00862622A

PATIENT

DRUGS (1)
  1. IMFINZI [Suspect]
     Active Substance: DURVALUMAB
     Indication: Non-small cell lung cancer stage III
     Route: 065

REACTIONS (11)
  - Pneumonitis [Unknown]
  - Hepatitis [Unknown]
  - Neoplasm prostate [Unknown]
  - Anaemia [Unknown]
  - Diarrhoea [Unknown]
  - Thyroiditis [Unknown]
  - Rheumatic disorder [Unknown]
  - Dermatitis [Unknown]
  - Oesophageal disorder [Unknown]
  - Glossitis [Unknown]
  - Herpes zoster [Unknown]
